FAERS Safety Report 17011523 (Version 2)
Quarter: 2020Q4

REPORT INFORMATION
  Report Type: Spontaneous
  Country: US (occurrence: US)
  Receive Date: 20191108
  Receipt Date: 20201030
  Transmission Date: 20210113
  Serious: No
  Sender: FDA-Public Use
  Company Number: US-NOVOPROD-688540

PATIENT
  Age: 60 Year
  Sex: Male

DRUGS (1)
  1. TRESIBA [Suspect]
     Active Substance: INSULIN DEGLUDEC
     Indication: PRODUCT USED FOR UNKNOWN INDICATION
     Dosage: UNK
     Route: 058

REACTIONS (3)
  - Stress [Unknown]
  - Blood glucose increased [Unknown]
  - Blood glucose decreased [Unknown]
